FAERS Safety Report 10239258 (Version 3)
Quarter: 2014Q3

REPORT INFORMATION
  Report Type: Spontaneous
  Country: ZA (occurrence: ZA)
  Receive Date: 20140616
  Receipt Date: 20140719
  Transmission Date: 20150326
  Serious: Yes (Hospitalization)
  Sender: FDA-Public Use
  Company Number: ZA-ABBVIE-13P-143-1092311-00

PATIENT
  Age: 47 Year
  Sex: Female

DRUGS (1)
  1. HUMIRA [Suspect]
     Active Substance: ADALIMUMAB
     Indication: RHEUMATOID ARTHRITIS
     Route: 058
     Dates: start: 201304, end: 201405

REACTIONS (8)
  - Pleural fibrosis [Unknown]
  - Peptic ulcer [Not Recovered/Not Resolved]
  - Spinal osteoarthritis [Unknown]
  - Osteopenia [Unknown]
  - Liver disorder [Unknown]
  - Pulmonary mass [Unknown]
  - Chest pain [Not Recovered/Not Resolved]
  - Insomnia [Unknown]

NARRATIVE: CASE EVENT DATE: 201304
